FAERS Safety Report 25108154 (Version 1)
Quarter: 2025Q1

REPORT INFORMATION
  Report Type: Spontaneous
  Country: US (occurrence: US)
  Receive Date: 20250322
  Receipt Date: 20250322
  Transmission Date: 20250408
  Serious: Yes (Hospitalization, Other)
  Sender: SANOFI AVENTIS
  Company Number: US-SANOFI-02453551

PATIENT
  Age: 10 Year
  Sex: Female

DRUGS (4)
  1. TZIELD [Suspect]
     Active Substance: TEPLIZUMAB-MZWV
     Indication: Diabetes prophylaxis
     Route: 042
     Dates: start: 20250310
  2. SAFFRON [Suspect]
     Active Substance: SAFFRON
     Indication: Premedication
     Dates: start: 20250314
  3. TYLENOL [Concomitant]
     Active Substance: ACETAMINOPHEN
     Indication: Premedication
     Dates: start: 20250314
  4. IBUPROFEN [Concomitant]
     Active Substance: IBUPROFEN
     Indication: Premedication
     Dates: start: 20250314

REACTIONS (4)
  - Cytokine release syndrome [Unknown]
  - Body temperature increased [Unknown]
  - Nausea [Unknown]
  - Vomiting [Unknown]

NARRATIVE: CASE EVENT DATE: 20250314
